FAERS Safety Report 19005987 (Version 1)
Quarter: 2021Q1

REPORT INFORMATION
  Report Type: Spontaneous
  Country: CA (occurrence: CA)
  Receive Date: 20210314
  Receipt Date: 20210314
  Transmission Date: 20210420
  Serious: Yes (Other)
  Sender: FDA-Public Use
  Company Number: CA-CIPHER-2021-CA-000546

PATIENT
  Age: 57 Year
  Sex: Female

DRUGS (23)
  1. DILTIAZEM. [Concomitant]
     Active Substance: DILTIAZEM
  2. TRAMADOL HYDROCHLORIDE. [Suspect]
     Active Substance: TRAMADOL HYDROCHLORIDE
     Indication: PRODUCT USED FOR UNKNOWN INDICATION
     Dosage: DOSE UNKNOWN
     Route: 065
  3. TOPIRAMATE. [Concomitant]
     Active Substance: TOPIRAMATE
  4. TRAMACET [Concomitant]
     Active Substance: ACETAMINOPHEN\TRAMADOL
  5. ARTHROTEC [Concomitant]
     Active Substance: DICLOFENAC SODIUM\MISOPROSTOL
  6. LEFLUNOMIDE. [Suspect]
     Active Substance: LEFLUNOMIDE
     Route: 065
  7. TEMAZEPAM. [Concomitant]
     Active Substance: TEMAZEPAM
     Indication: SLEEP DISORDER
  8. FOLIC ACID. [Concomitant]
     Active Substance: FOLIC ACID
  9. HYDROXYCHLOROQUINE SULFATE. [Suspect]
     Active Substance: HYDROXYCHLOROQUINE SULFATE
     Indication: PAIN IN EXTREMITY
     Route: 065
  10. MYCOPHENOLATE MOFETIL HYDROCHLORIDE [Concomitant]
     Active Substance: MYCOPHENOLATE MOFETIL HYDROCHLORIDE
  11. ACETAMINOPHEN/OXYCODONE HYDROCHLORIDE [Concomitant]
     Active Substance: ACETAMINOPHEN\OXYCODONE HYDROCHLORIDE
  12. D?ALPHA TOCOPHEROL/DOCOSAH EXAENOIC ACID/EICOSAPENTAENOIC ACID [Concomitant]
  13. PREDNISONE. [Concomitant]
     Active Substance: PREDNISONE
  14. SULFASALAZINE. [Suspect]
     Active Substance: SULFASALAZINE
     Indication: PAIN IN EXTREMITY
     Route: 065
  15. MAXALT [Concomitant]
     Active Substance: RIZATRIPTAN BENZOATE
     Indication: MIGRAINE
  16. SALAZOPYRIN [Concomitant]
     Active Substance: SULFASALAZINE
  17. AZATHIOPRINE. [Suspect]
     Active Substance: AZATHIOPRINE
     Route: 065
  18. VITAMIN D3 [Concomitant]
     Active Substance: CHOLECALCIFEROL
  19. AMITRIPTYLINE [Suspect]
     Active Substance: AMITRIPTYLINE
     Route: 065
  20. ERGOCALCIFEROL. [Concomitant]
     Active Substance: ERGOCALCIFEROL
  21. FERROUS FUMARATE [Suspect]
     Active Substance: FERROUS FUMARATE
     Route: 065
  22. HYDROCHLOROTHIAZIDE. [Concomitant]
     Active Substance: HYDROCHLOROTHIAZIDE
  23. METHOTREXATE. [Suspect]
     Active Substance: METHOTREXATE
     Route: 065

REACTIONS (20)
  - Migraine [Unknown]
  - Constipation [Unknown]
  - Depression [Unknown]
  - Liver function test increased [Unknown]
  - Alanine aminotransferase increased [Unknown]
  - Systemic lupus erythematosus [Unknown]
  - Malaise [Unknown]
  - Photosensitivity reaction [Unknown]
  - Road traffic accident [Unknown]
  - Inflammation [Unknown]
  - Osteoarthritis [Unknown]
  - Therapeutic response decreased [Unknown]
  - Aphthous ulcer [Unknown]
  - Dysgeusia [Unknown]
  - Facial pain [Unknown]
  - Neuropathy peripheral [Unknown]
  - Paraesthesia [Unknown]
  - Polyarthritis [Unknown]
  - Back pain [Unknown]
  - Fibromyalgia [Unknown]
